FAERS Safety Report 16385093 (Version 2)
Quarter: 2019Q3

REPORT INFORMATION
  Report Type: Spontaneous
  Country: US (occurrence: US)
  Receive Date: 20190603
  Receipt Date: 20190704
  Transmission Date: 20191004
  Serious: Yes (Other)
  Sender: FDA-Public Use
  Company Number: US-MYLANLABS-2019M1050141

PATIENT
  Age: 64 Year
  Sex: Female
  Weight: 66 kg

DRUGS (1)
  1. WIXELA INHUB [Suspect]
     Active Substance: FLUTICASONE PROPIONATE\SALMETEROL XINAFOATE
     Indication: ASTHMA
     Dosage: 1 PUFF, BID
     Route: 055
     Dates: start: 20190513, end: 20190515

REACTIONS (7)
  - Cough [Recovering/Resolving]
  - Bronchitis [Not Recovered/Not Resolved]
  - Drug ineffective [Recovering/Resolving]
  - Productive cough [Not Recovered/Not Resolved]
  - Throat irritation [Recovering/Resolving]
  - Asthma [Recovering/Resolving]
  - Device issue [Unknown]

NARRATIVE: CASE EVENT DATE: 20190513
